FAERS Safety Report 6934175-7 (Version None)
Quarter: 2010Q3

REPORT INFORMATION
  Report Type: 
  Country: None (occurrence: None)
  Receive Date: 20100820
  Receipt Date: 20100806
  Transmission Date: 20110219
  Serious: No
  Sender: FDA-Public Use
  Company Number: US-PFIZER INC-2010091204

PATIENT
  Sex: Male
  Weight: 25 kg

DRUGS (4)
  1. GENOTROPIN [Suspect]
     Indication: BODY HEIGHT BELOW NORMAL
     Dosage: 0.3 MG/KG, WEEKLY
     Dates: start: 20090817
  2. STRATTERA [Concomitant]
     Indication: ATTENTION DEFICIT/HYPERACTIVITY DISORDER
     Dates: start: 20100101
  3. STRATTERA [Concomitant]
     Dosage: UNK
  4. IMMUNOGLOBULINS [Concomitant]
     Indication: BLOOD IMMUNOGLOBULIN G DECREASED
     Dosage: UNK

REACTIONS (1)
  - NO ADVERSE EVENT [None]
